FAERS Safety Report 23230103 (Version 1)
Quarter: 2023Q4

REPORT INFORMATION
  Report Type: Spontaneous
  Country: GB (occurrence: GB)
  Receive Date: 20231127
  Receipt Date: 20231127
  Transmission Date: 20240110
  Serious: Yes (Other)
  Sender: FDA-Public Use
  Company Number: None

PATIENT
  Sex: Male

DRUGS (1)
  1. SILDENAFIL [Suspect]
     Active Substance: SILDENAFIL
     Indication: Product used for unknown indication
     Dosage: 50MG 3 PER DAY; ;
     Route: 065

REACTIONS (3)
  - Dyspnoea [Unknown]
  - Nephrolithiasis [Unknown]
  - Condition aggravated [Unknown]
